FAERS Safety Report 12330964 (Version 1)
Quarter: 2016Q2

REPORT INFORMATION
  Report Type: Spontaneous
  Country: US (occurrence: None)
  Receive Date: 20160503
  Receipt Date: 20160503
  Transmission Date: 20160815
  Serious: No
  Sender: FDA-Public Use
  Company Number: None

PATIENT
  Age: 2 Year
  Sex: Male

DRUGS (7)
  1. SABRIL [Suspect]
     Active Substance: VIGABATRIN
     Indication: TUBEROUS SCLEROSIS
     Dosage: 750 MG BID PO MIXED IN WATER
     Route: 048
     Dates: start: 20160422
  2. LOSTARTAN [Concomitant]
  3. SOD.FLUORIDE DROPS [Concomitant]
  4. AFINITOR DISPERZ [Suspect]
     Active Substance: EVEROLIMUS
     Indication: BRAIN NEOPLASM
     Dosage: 2MG QD PO MIXED IN WATER
     Route: 048
     Dates: start: 20160407
  5. IRON SUPPLMT DRO [Concomitant]
  6. LISINOPRIL. [Concomitant]
     Active Substance: LISINOPRIL
  7. ATENOLOL. [Concomitant]
     Active Substance: ATENOLOL

REACTIONS (3)
  - Febrile convulsion [None]
  - Fatigue [None]
  - Upper respiratory tract infection [None]

NARRATIVE: CASE EVENT DATE: 20160430
